FAERS Safety Report 7401436-7 (Version None)
Quarter: 2011Q2

REPORT INFORMATION
  Report Type: 
  Country: None (occurrence: None)
  Receive Date: 20110407
  Receipt Date: 20110325
  Transmission Date: 20111010
  Serious: Yes (Life-Threatening)
  Sender: FDA-Public Use
  Company Number: KR-MYLANLABS-2011S1006392

PATIENT
  Age: 16 Year
  Sex: Male

DRUGS (1)
  1. MINOCYCLINE [Suspect]
     Indication: ACNE
     Route: 048

REACTIONS (2)
  - PAROTITIS [None]
  - STEVENS-JOHNSON SYNDROME [None]
